FAERS Safety Report 10414766 (Version 4)
Quarter: 2014Q4

REPORT INFORMATION
  Report Type: Spontaneous
  Country: GB (occurrence: GB)
  Receive Date: 20140828
  Receipt Date: 20141222
  Transmission Date: 20150528
  Serious: Yes (Other)
  Sender: FDA-Public Use
  Company Number: GB-JNJFOC-20140822424

PATIENT
  Sex: Male

DRUGS (4)
  1. DULOXETINE [Concomitant]
     Active Substance: DULOXETINE
     Indication: PRODUCT USED FOR UNKNOWN INDICATION
     Route: 065
  2. NAPROXEN. [Concomitant]
     Active Substance: NAPROXEN
     Indication: PRODUCT USED FOR UNKNOWN INDICATION
     Route: 065
  3. FYBOGEL [Concomitant]
     Active Substance: PLANTAGO OVATA SEED
     Indication: PRODUCT USED FOR UNKNOWN INDICATION
     Route: 065
  4. ZAMADOL [Suspect]
     Active Substance: TRAMADOL HYDROCHLORIDE
     Indication: PRODUCT USED FOR UNKNOWN INDICATION
     Dosage: EVERY DAY
     Route: 048
     Dates: start: 20131021

REACTIONS (20)
  - Self injurious behaviour [Unknown]
  - Agitation [Unknown]
  - Panic attack [Unknown]
  - Chest pain [Unknown]
  - Heart rate increased [Unknown]
  - Pruritus [Unknown]
  - Headache [Unknown]
  - Frustration [Unknown]
  - Scratch [Unknown]
  - Pain [Unknown]
  - Mood altered [Unknown]
  - Malaise [Unknown]
  - Hyperhidrosis [Unknown]
  - Drug dose omission [Unknown]
  - Feeling abnormal [Unknown]
  - Self-injurious ideation [Unknown]
  - Palpitations [Unknown]
  - Anxiety [Unknown]
  - Fatigue [Unknown]
  - Insomnia [Unknown]
